FAERS Safety Report 14870414 (Version 2)
Quarter: 2018Q2

REPORT INFORMATION
  Report Type: Spontaneous
  Country: FR (occurrence: FR)
  Receive Date: 20180509
  Receipt Date: 20180518
  Transmission Date: 20180711
  Serious: Yes (Hospitalization, Disabling)
  Sender: FDA-Public Use
  Company Number: FR-BRACCO-2017FR06191

PATIENT
  Age: 36 Year
  Sex: Male

DRUGS (4)
  1. IOPAMIRON [Concomitant]
     Active Substance: IOPAMIDOL
     Indication: DISCOGRAM
     Dosage: 10 ML, SINGLE
     Route: 024
     Dates: start: 20170627, end: 20170627
  2. XYLOCAINE                          /00033402/ [Concomitant]
     Active Substance: LIDOCAINE HYDROCHLORIDE
     Indication: LOCAL ANAESTHESIA
     Dosage: 10 MG/ML
     Route: 030
     Dates: start: 20170627, end: 20170627
  3. XYLOCAINE                          /00033402/ [Concomitant]
     Active Substance: LIDOCAINE HYDROCHLORIDE
     Indication: LOCAL ANAESTHESIA
     Dosage: 10 MG/ML
     Route: 058
     Dates: start: 20170627, end: 20170627
  4. HYDROCORTANCYL                     /00016204/ [Suspect]
     Active Substance: PREDNISOLONE ACETATE
     Indication: BACK PAIN
     Dosage: 1 ML, SINGLE
     Route: 024
     Dates: start: 20170627, end: 20170627

REACTIONS (2)
  - Paraplegia [Unknown]
  - Spinal cord ischaemia [Unknown]

NARRATIVE: CASE EVENT DATE: 20170627
